FAERS Safety Report 5164287-2 (Version None)
Quarter: 2006Q4

REPORT INFORMATION
  Report Type: 
  Country: None (occurrence: None)
  Receive Date: 20061129
  Receipt Date: 20061129
  Transmission Date: 20070319
  Serious: Yes (Life-Threatening)
  Sender: FDA-Public Use
  Company Number: None

PATIENT
  Age: 50 Year
  Sex: Male

DRUGS (1)
  1. CARDENE [Suspect]
     Indication: HYPERTENSION
     Dosage: 25 MG/240 ML NORMAL SALINE TITRATED IV DRIP
     Route: 041
     Dates: start: 20060815, end: 20060815

REACTIONS (1)
  - ANGIONEUROTIC OEDEMA [None]
